FAERS Safety Report 4689529-9 (Version None)
Quarter: 2005Q2

REPORT INFORMATION
  Report Type: 
  Country: None (occurrence: None)
  Receive Date: 20050613
  Receipt Date: 20050613
  Transmission Date: 20051028
  Serious: Yes (Hospitalization)
  Sender: FDA-Public Use
  Company Number: None

PATIENT
  Age: 59 Year
  Sex: Male
  Weight: 118 kg

DRUGS (1)
  1. ADVIL 200 MG (IBUPROFEN) [Suspect]
     Indication: OSTEOARTHRITIS
     Dosage: 200 MG PO B-TID
     Route: 048
     Dates: start: 20050401

REACTIONS (1)
  - MELAENA [None]
